FAERS Safety Report 7817694-0 (Version None)
Quarter: 2011Q4

REPORT INFORMATION
  Report Type: 
  Country: None (occurrence: None)
  Receive Date: 20111017
  Receipt Date: 20111014
  Transmission Date: 20120403
  Serious: Yes (Death, Hospitalization)
  Sender: FDA-Public Use
  Company Number: NZ-B.I. PHARMACEUTICALS,INC./RIDGEFIELD-2011-AU-01489AU

PATIENT
  Sex: Female
  Weight: 67 kg

DRUGS (7)
  1. DILTIAZEM HCL [Concomitant]
  2. OMEPRAZOLE [Concomitant]
  3. SYMBICORT [Concomitant]
  4. FUROSEMIDE [Concomitant]
  5. DIGOXIN [Concomitant]
  6. PRADAXA [Suspect]
     Indication: ATRIAL FIBRILLATION
     Dosage: 220 MG
     Dates: start: 20110706, end: 20110907
  7. CILAZAPRIL [Concomitant]

REACTIONS (4)
  - ARTERIOSCLEROSIS CORONARY ARTERY [None]
  - ARRHYTHMIA [None]
  - INCREASED TENDENCY TO BRUISE [None]
  - MALAISE [None]
